FAERS Safety Report 10464059 (Version 3)
Quarter: 2015Q1

REPORT INFORMATION
  Report Type: Report from Study
  Country: FR (occurrence: FR)
  Receive Date: 20140919
  Receipt Date: 20150128
  Transmission Date: 20150720
  Serious: Yes (Hospitalization)
  Sender: FDA-Public Use
  Company Number: FR-B.I. PHARMACEUTICALS,INC./RIDGEFIELD-2014-BI-35259BI

PATIENT
  Age: 40 Year
  Sex: Female
  Weight: 55 kg

DRUGS (10)
  1. OXYCONTIN [Concomitant]
     Active Substance: OXYCODONE HYDROCHLORIDE
     Indication: PAIN
     Dosage: 60 MG
     Route: 048
     Dates: start: 20140708
  2. PHOSPHONEUROS [Concomitant]
     Active Substance: CALCIUM PHOSPHATE, DIBASIC, ANHYDROUS\MAGNESIUM GLYCEROPHOSPHATE\PHOSPHORIC ACID\SODIUM PHOSPHATE, DIBASIC
     Indication: HYPOPHOSPHATAEMIA
     Dosage: 150 ANZ
     Route: 048
     Dates: start: 20140730
  3. DIFFU-K [Concomitant]
     Active Substance: POTASSIUM CHLORIDE
     Indication: HYPOKALAEMIA
     Route: 048
     Dates: start: 20140730
  4. OXYNORM [Concomitant]
     Active Substance: OXYCODONE HYDROCHLORIDE
     Indication: PAIN
     Dosage: DAILY DOSE: 5MG IF NEEDED
     Route: 048
     Dates: start: 20140708
  5. TIORFAN [Concomitant]
     Active Substance: RACECADOTRIL
     Indication: DIARRHOEA
     Dosage: DOSE PER APPLICATION: 1, DAILY DOSE: 1 A DAY IF NEEDED
     Route: 048
     Dates: start: 20140717
  6. MAGNESPASMYL [Concomitant]
     Indication: HYPOMAGNESAEMIA
     Dosage: 94.8 MG
     Route: 048
     Dates: start: 20140730
  7. BIBW 2992 [Suspect]
     Active Substance: AFATINIB
     Indication: CHEMOTHERAPY
     Dosage: 40 MG
     Route: 048
     Dates: start: 20140711
  8. PLAVIX [Concomitant]
     Active Substance: CLOPIDOGREL BISULFATE
     Indication: THROMBOSIS PROPHYLAXIS
     Dosage: 75 MG
     Route: 048
     Dates: start: 20140725
  9. LYRICA [Concomitant]
     Active Substance: PREGABALIN
     Indication: PAIN
     Dosage: 100 MG
     Route: 048
     Dates: start: 20140617
  10. CETUXIMAB [Suspect]
     Active Substance: CETUXIMAB
     Indication: CHEMOTHERAPY
     Dosage: 393 MG
     Route: 042
     Dates: start: 20140711, end: 20140717

REACTIONS (1)
  - Proteinuria [Recovered/Resolved]

NARRATIVE: CASE EVENT DATE: 20140725
